FAERS Safety Report 7104458-9 (Version None)
Quarter: 2010Q4

REPORT INFORMATION
  Report Type: 
  Country: None (occurrence: None)
  Receive Date: 20101116
  Receipt Date: 20101108
  Transmission Date: 20110411
  Serious: Yes (Hospitalization)
  Sender: FDA-Public Use
  Company Number: DE-BIOGENIDEC-2010BI038839

PATIENT
  Age: 49 Year
  Sex: Female
  Weight: 100 kg

DRUGS (2)
  1. AVONEX [Suspect]
     Indication: RELAPSING-REMITTING MULTIPLE SCLEROSIS
     Route: 030
     Dates: start: 20081027, end: 20100501
  2. AVONEX [Suspect]
     Route: 030
     Dates: start: 20101108

REACTIONS (4)
  - FALL [None]
  - FOOT FRACTURE [None]
  - IMPAIRED HEALING [None]
  - MUSCULAR WEAKNESS [None]
